FAERS Safety Report 8542584-8 (Version None)
Quarter: 2012Q3

REPORT INFORMATION
  Report Type: 
  Country: None (occurrence: None)
  Receive Date: 20120726
  Receipt Date: 20120713
  Transmission Date: 20120928
  Serious: Yes (Other)
  Sender: FDA-Public Use
  Company Number: DE-MYLANLABS-2012S1014225

PATIENT
  Age: 47 Year
  Sex: Female

DRUGS (10)
  1. SEROQUEL [Concomitant]
     Route: 048
     Dates: start: 20120326, end: 20120328
  2. SEROQUEL [Suspect]
     Indication: PRODUCT USED FOR UNKNOWN INDICATION
     Route: 048
     Dates: start: 20120329, end: 20120329
  3. SEROQUEL [Suspect]
     Route: 048
     Dates: start: 20120403, end: 20120413
  4. SEROQUEL [Suspect]
     Route: 048
     Dates: start: 20120414
  5. MIRTAZAPINE [Suspect]
     Indication: PRODUCT USED FOR UNKNOWN INDICATION
     Route: 048
     Dates: start: 20120330, end: 20120402
  6. MIRTAZAPINE [Suspect]
     Route: 048
     Dates: start: 20120412, end: 20120416
  7. PANTOPRAZOLE [Concomitant]
     Indication: PRODUCT USED FOR UNKNOWN INDICATION
     Route: 048
     Dates: start: 20110401
  8. SEROQUEL [Concomitant]
     Route: 048
     Dates: start: 20120322, end: 20120325
  9. MIRTAZAPINE [Suspect]
     Route: 048
     Dates: start: 20120403, end: 20120411
  10. SEROQUEL [Suspect]
     Route: 048
     Dates: start: 20120330, end: 20120402

REACTIONS (2)
  - RESTLESS LEGS SYNDROME [None]
  - INSOMNIA [None]
